FAERS Safety Report 9261953 (Version 1)
Quarter: 2013Q2

REPORT INFORMATION
  Report Type: Spontaneous
  Country: GB (occurrence: GB)
  Receive Date: 20130429
  Receipt Date: 20130429
  Transmission Date: 20140414
  Serious: Yes (Other)
  Sender: FDA-Public Use
  Company Number: GB-B.I. PHARMACEUTICALS,INC./RIDGEFIELD-2013-UK-00914UK

PATIENT
  Sex: 0

DRUGS (5)
  1. PERSANTIN RETARD 150 [Suspect]
  2. FEXOFENADINE [Concomitant]
  3. SIMVASTATIN [Concomitant]
  4. CITALOPRAM [Concomitant]
  5. RAMIPRIL [Concomitant]

REACTIONS (1)
  - Eye operation [Unknown]
